FAERS Safety Report 7635588-0 (Version None)
Quarter: 2011Q3

REPORT INFORMATION
  Report Type: 
  Country: None (occurrence: None)
  Receive Date: 20110726
  Receipt Date: 20110715
  Transmission Date: 20111222
  Serious: Yes (Hospitalization)
  Sender: FDA-Public Use
  Company Number: CA-JNJFOC-20110707531

PATIENT
  Sex: Male

DRUGS (1)
  1. REMICADE [Suspect]
     Indication: COLITIS ULCERATIVE
     Route: 042
     Dates: start: 20100901, end: 20101001

REACTIONS (5)
  - AKINESIA [None]
  - COLECTOMY [None]
  - SERUM SICKNESS [None]
  - INFUSION RELATED REACTION [None]
  - ANAPHYLACTIC SHOCK [None]
